FAERS Safety Report 4776743-7 (Version None)
Quarter: 2005Q3

REPORT INFORMATION
  Report Type: 
  Country: None (occurrence: None)
  Receive Date: 20050922
  Receipt Date: 20050922
  Transmission Date: 20060218
  Serious: Yes (Hospitalization, Other)
  Sender: FDA-Public Use
  Company Number: None

PATIENT
  Sex: Female
  Weight: 70 kg

DRUGS (7)
  1. DOXORUBICIN HCL [Suspect]
     Indication: BREAST CANCER
     Dosage: SEE IMAGE
     Route: 042
     Dates: start: 20041229, end: 20041229
  2. CYCLOPHOSPHAMIDE [Suspect]
     Dosage: SEE IMAGE
     Route: 042
     Dates: start: 20041229, end: 20041229
  3. PACLITAXEL [Suspect]
     Dosage: SEE IMAGE
     Route: 042
     Dates: start: 20041229
  4. TRASTUZUMAB [Suspect]
     Dosage: SEE IMAGE
     Route: 042
     Dates: start: 20041229
  5. TRASTUZUMAB [Suspect]
     Dosage: SEE IMAGE
     Route: 042
     Dates: start: 20041229
  6. HORMONAL THERAPY [Suspect]
     Dosage: SEE IMAGE
     Dates: start: 20041229
  7. RADIATION [Suspect]
     Dosage: SEE IMAGE
     Dates: start: 20041229

REACTIONS (8)
  - AMPUTATION [None]
  - DIALYSIS [None]
  - GAS GANGRENE [None]
  - PYREXIA [None]
  - REFUSAL OF TREATMENT BY PATIENT [None]
  - RENAL FAILURE [None]
  - SEPTIC SHOCK [None]
  - TREATMENT NONCOMPLIANCE [None]
